FAERS Safety Report 8232634-0 (Version None)
Quarter: 2012Q1

REPORT INFORMATION
  Report Type: 
  Country: None (occurrence: None)
  Receive Date: 20120323
  Receipt Date: 20120307
  Transmission Date: 20120608
  Serious: Yes (Hospitalization)
  Sender: FDA-Public Use
  Company Number: CHPA2012US004670

PATIENT
  Age: 34 Year
  Sex: Female

DRUGS (2)
  1. EXCEDRIN (MIGRAINE) [Suspect]
     Indication: HEADACHE
     Dosage: 2 DF, PRN
     Route: 048
     Dates: start: 20040101
  2. PROPRANOLOL [Concomitant]
     Indication: BLOOD PRESSURE
     Dosage: UNK, UNK
     Route: 048

REACTIONS (6)
  - DEHYDRATION [None]
  - HEADACHE [None]
  - DIZZINESS [None]
  - FATIGUE [None]
  - FEELING ABNORMAL [None]
  - HYPERHIDROSIS [None]
